FAERS Safety Report 8618912-1 (Version None)
Quarter: 2012Q3

REPORT INFORMATION
  Report Type: 
  Country: None (occurrence: None)
  Receive Date: 20120824
  Receipt Date: 20120822
  Transmission Date: 20120928
  Serious: Yes (Other)
  Sender: FDA-Public Use
  Company Number: US-PFIZER INC-2012207259

PATIENT
  Age: 65 Year
  Sex: Female
  Weight: 109 kg

DRUGS (12)
  1. CELEBREX [Suspect]
     Indication: ARTHRITIS
  2. INDAPAMIDE [Suspect]
     Indication: HYPERTENSION
     Dosage: 1.25 MG, DAILY
  3. CELEBREX [Suspect]
     Indication: CARTILAGE INJURY
     Dosage: 200 MG, DAILY
  4. SPIRIVA [Concomitant]
     Indication: ASTHMA
     Dosage: UNK
  5. ADVAIR DISKUS 100/50 [Concomitant]
     Indication: ASTHMA
     Dosage: UNK
  6. IPRATROPIUM BROMIDE AND ALBUTEROL SULFATE [Concomitant]
     Indication: ASTHMA
     Dosage: 3.0/0.5 MG, 4X/DAY
  7. CELEBREX [Suspect]
     Indication: INTERVERTEBRAL DISC DEGENERATION
  8. SIMVASTATIN [Concomitant]
     Indication: BLOOD CHOLESTEROL INCREASED
     Dosage: 10 MG, DAILY
  9. SPIRIVA [Concomitant]
     Indication: CHRONIC OBSTRUCTIVE PULMONARY DISEASE
  10. ADVAIR DISKUS 100/50 [Concomitant]
     Indication: CHRONIC OBSTRUCTIVE PULMONARY DISEASE
  11. IPRATROPIUM BROMIDE AND ALBUTEROL SULFATE [Concomitant]
     Indication: CHRONIC OBSTRUCTIVE PULMONARY DISEASE
  12. LOSARTAN [Concomitant]
     Indication: HYPERTENSION
     Dosage: 100 MG, DAILY

REACTIONS (1)
  - RENAL FAILURE CHRONIC [None]
